FAERS Safety Report 11692763 (Version 1)
Quarter: 2015Q4

REPORT INFORMATION
  Report Type: Spontaneous
  Country: JP (occurrence: JP)
  Receive Date: 20151103
  Receipt Date: 20151103
  Transmission Date: 20160304
  Serious: Yes (Death)
  Sender: FDA-Public Use
  Company Number: JP-MALLINCKRODT-T201505023

PATIENT
  Age: 58 Year
  Sex: Female
  Weight: 45 kg

DRUGS (27)
  1. METHADONE [Suspect]
     Active Substance: METHADONE HYDROCHLORIDE
     Dosage: 5 MG, 15 MG DAILY DOSE
     Route: 048
     Dates: start: 20150523, end: 20150526
  2. ZOMETA [Concomitant]
     Active Substance: ZOLEDRONIC ACID
     Indication: ANALGESIC THERAPY
     Dosage: 4 MG
     Route: 051
     Dates: start: 20150516, end: 20150516
  3. METHADONE [Suspect]
     Active Substance: METHADONE HYDROCHLORIDE
     Dosage: 10 MG, 30 MG DAILY DOSE
     Route: 048
     Dates: start: 20150530, end: 20150605
  4. ROZEREM [Concomitant]
     Active Substance: RAMELTEON
     Dosage: 8 MG
     Route: 048
     Dates: end: 20150605
  5. RIVOTRIL [Concomitant]
     Active Substance: CLONAZEPAM
     Dosage: 0.25 MG
     Route: 048
     Dates: end: 20150605
  6. OLIVES [Concomitant]
     Active Substance: LIDOCAINE HYDROCHLORIDE
     Indication: ANALGESIC THERAPY
     Dosage: 720 MG
     Route: 051
     Dates: start: 20150515, end: 20150518
  7. ALBUMIN [Concomitant]
     Active Substance: ALBUMIN (HUMAN)
     Dosage: 50 ML
     Route: 051
     Dates: start: 20150515, end: 20150517
  8. HICORT [Concomitant]
     Indication: ANALGESIC THERAPY
     Dosage: UNK
     Route: 051
     Dates: start: 20150516, end: 20150610
  9. LINTON [Concomitant]
     Active Substance: HALOPERIDOL
     Dosage: UNK
     Route: 051
     Dates: start: 20150517, end: 20150610
  10. METHADONE [Suspect]
     Active Substance: METHADONE HYDROCHLORIDE
     Dosage: 10 MG, 20 MG DAILY DOSE
     Route: 048
     Dates: start: 20150527, end: 20150529
  11. NEXIUM [Concomitant]
     Active Substance: ESOMEPRAZOLE MAGNESIUM
     Dosage: 20 MG
     Route: 048
     Dates: end: 20150605
  12. OLIVES [Concomitant]
     Active Substance: LIDOCAINE HYDROCHLORIDE
     Dosage: 960 MG
     Route: 051
     Dates: start: 20150519, end: 20150608
  13. WYSTAL [Concomitant]
     Active Substance: CEFOPERAZONE SODIUM\SULBACTAM SODIUM
     Dosage: UNK
     Route: 051
     Dates: start: 20150526, end: 20150603
  14. METHADONE [Suspect]
     Active Substance: METHADONE HYDROCHLORIDE
     Indication: CANCER PAIN
     Dosage: 5 MG, 10 MG DAILY DOSE
     Route: 048
     Dates: start: 20150516, end: 20150522
  15. WARFARIN [Concomitant]
     Active Substance: WARFARIN
     Dosage: 1 MG
     Route: 048
     Dates: end: 20150605
  16. OXYFAST [Concomitant]
     Active Substance: OXYCODONE
     Indication: ANALGESIC THERAPY
     Dosage: 480 MG (10-15 MG)
     Route: 051
     Dates: start: 20150515, end: 20150610
  17. ELNEOPA NO.1 [Concomitant]
     Dosage: 1000 ML
     Route: 051
     Dates: start: 20150522, end: 20150601
  18. ROPION [Concomitant]
     Active Substance: FLURBIPROFEN AXETIL
     Indication: ANALGESIC THERAPY
     Dosage: 150 MG
     Route: 042
     Dates: start: 20150515, end: 20150608
  19. KETALAR [Concomitant]
     Active Substance: KETAMINE HYDROCHLORIDE
     Indication: ANALGESIC THERAPY
     Dosage: 240 MG
     Route: 051
     Dates: start: 20150515, end: 20150610
  20. REPLAS [Concomitant]
     Active Substance: DEXTROSE\SODIUM CHLORIDE\SODIUM LACTATE
     Dosage: UNK
     Route: 051
     Dates: start: 2015, end: 20150610
  21. FENTOS [Concomitant]
     Active Substance: FENTANYL
     Indication: ANALGESIC THERAPY
     Dosage: 2 MG
     Route: 062
     Dates: start: 20150515, end: 20150520
  22. BFLUID [Concomitant]
     Active Substance: AMINO ACIDS\DEXTROSE\ELECTROLYTES NOS\VITAMINS
     Dosage: 1500 ML
     Route: 051
     Dates: start: 20150515, end: 20150521
  23. MIDAZOLAM [Concomitant]
     Active Substance: MIDAZOLAM\MIDAZOLAM HYDROCHLORIDE
     Dosage: UNK
     Route: 051
     Dates: start: 20150518, end: 20150610
  24. PANTOL [Concomitant]
     Active Substance: DEXPANTHENOL
     Dosage: 1000 MG
     Route: 051
     Dates: start: 20150519, end: 20150601
  25. ROHYPNOL [Concomitant]
     Active Substance: FLUNITRAZEPAM
     Dosage: 2 MG
     Route: 051
     Dates: start: 20150604, end: 20150610
  26. PHENOBAL [Concomitant]
     Active Substance: PHENOBARBITAL
     Dosage: 100 MG
     Route: 051
     Dates: start: 20150604, end: 20150610
  27. OXYFAST [Concomitant]
     Active Substance: OXYCODONE
     Indication: ANALGESIC THERAPY
     Dosage: 10-15 MG
     Route: 051
     Dates: start: 20150515

REACTIONS (1)
  - Malignant fibrous histiocytoma [Fatal]

NARRATIVE: CASE EVENT DATE: 20150610
